FAERS Safety Report 10170267 (Version 2)
Quarter: 2014Q2

REPORT INFORMATION
  Report Type: Spontaneous
  Country: US (occurrence: US)
  Receive Date: 20140513
  Receipt Date: 20140619
  Transmission Date: 20141212
  Serious: No
  Sender: FDA-Public Use
  Company Number: US-009507513-1405USA003858

PATIENT
  Sex: Female

DRUGS (3)
  1. OXYTROL FOR WOMEN [Suspect]
     Indication: POLLAKIURIA
     Dosage: UNK, UNKNOWN
     Route: 062
  2. WELLBUTRIN [Concomitant]
     Indication: DEPRESSION
     Dosage: UNK, UNKNOWN
  3. TRAZODONE HYDROCHLORIDE [Concomitant]
     Indication: INSOMNIA
     Dosage: UNK, UNKNOWN

REACTIONS (1)
  - Nausea [Unknown]
